FAERS Safety Report 11118393 (Version 1)
Quarter: 2015Q2

REPORT INFORMATION
  Report Type: Spontaneous
  Country: US (occurrence: US)
  Receive Date: 20150518
  Receipt Date: 20150518
  Transmission Date: 20150821
  Serious: Yes (Hospitalization)
  Sender: FDA-Public Use
  Company Number: US-BIOGENIDEC-2015BI063136

PATIENT
  Sex: Female

DRUGS (1)
  1. TYSABRI [Suspect]
     Active Substance: NATALIZUMAB
     Indication: MULTIPLE SCLEROSIS
     Route: 042
     Dates: start: 20100630, end: 20120413

REACTIONS (7)
  - Coordination abnormal [Unknown]
  - Abnormal behaviour [Unknown]
  - Fall [Recovered/Resolved]
  - Gait disturbance [Unknown]
  - Foot fracture [Unknown]
  - Musculoskeletal disorder [Unknown]
  - Dysgraphia [Unknown]
